FAERS Safety Report 6346217-0 (Version None)
Quarter: 2009Q3

REPORT INFORMATION
  Report Type: 
  Country: None (occurrence: None)
  Receive Date: 20090909
  Receipt Date: 20090901
  Transmission Date: 20100115
  Serious: No
  Sender: FDA-Public Use
  Company Number: US-B.I. PHARMACEUTICALS,INC./RIDGEFIELD-2009-BP-10279BP

PATIENT
  Age: 76 Year
  Sex: Female

DRUGS (6)
  1. AGGRENOX [Suspect]
     Indication: THROMBOSIS PROPHYLAXIS
     Route: 048
     Dates: start: 20090829
  2. LISINOPRIL [Concomitant]
     Indication: HYPERTENSION
  3. GLIPIZIDE [Concomitant]
     Indication: DIABETES MELLITUS
  4. GLUCOPHAGE [Concomitant]
     Indication: DIABETES MELLITUS
  5. TOPROL-XL [Concomitant]
     Indication: HYPERTENSION
  6. LIPITOR [Concomitant]
     Indication: BLOOD CHOLESTEROL INCREASED

REACTIONS (1)
  - HEADACHE [None]
